FAERS Safety Report 6843121-6 (Version None)
Quarter: 2010Q3

REPORT INFORMATION
  Report Type: 
  Country: None (occurrence: None)
  Receive Date: 20100715
  Receipt Date: 20100708
  Transmission Date: 20110219
  Serious: Yes (Hospitalization)
  Sender: FDA-Public Use
  Company Number: US-BIOGENIDEC-2010BI023069

PATIENT
  Age: 67 Year
  Sex: Female
  Weight: 86 kg

DRUGS (6)
  1. AVONEX [Suspect]
     Indication: MULTIPLE SCLEROSIS
     Route: 030
     Dates: start: 20090518
  2. RADIOACTIVE THYROID MEDICATION [Concomitant]
     Indication: HYPERTHYROIDISM
  3. LASIX [Concomitant]
     Indication: FLUID RETENTION
     Dates: start: 20090101
  4. POTASSIUM CHLORIDE [Concomitant]
     Dates: start: 20090101
  5. KLOR-CON [Concomitant]
     Indication: PRODUCT USED FOR UNKNOWN INDICATION
     Dates: start: 20090401
  6. VYTORIN [Concomitant]
     Indication: BLOOD CHOLESTEROL INCREASED
     Dates: start: 20050101

REACTIONS (1)
  - APPENDICITIS [None]
